FAERS Safety Report 4990188-6 (Version None)
Quarter: 2006Q2

REPORT INFORMATION
  Report Type: 
  Country: None (occurrence: None)
  Receive Date: 20060501
  Receipt Date: 20060501
  Transmission Date: 20061013
  Serious: Yes (Life-Threatening, Hospitalization, Other)
  Sender: FDA-Public Use
  Company Number: None

PATIENT
  Age: 11 Year
  Sex: Male
  Weight: 43 kg

DRUGS (1)
  1. PEGASPARGASE [Suspect]
     Indication: ACUTE LYMPHOCYTIC LEUKAEMIA
     Dates: start: 20060402, end: 20060402

REACTIONS (8)
  - DIARRHOEA [None]
  - HEADACHE [None]
  - INTRACRANIAL VENOUS SINUS THROMBOSIS [None]
  - MALAISE [None]
  - PYREXIA [None]
  - SUPERIOR SAGITTAL SINUS THROMBOSIS [None]
  - TRANSVERSE SINUS THROMBOSIS [None]
  - VOMITING [None]
